FAERS Safety Report 7340799-8 (Version None)
Quarter: 2011Q1

REPORT INFORMATION
  Report Type: 
  Country: None (occurrence: None)
  Receive Date: 20110309
  Receipt Date: 20110301
  Transmission Date: 20110831
  Serious: Yes (Other)
  Sender: FDA-Public Use
  Company Number: CN-SANOFI-AVENTIS-2011SA012437

PATIENT
  Age: 53 Year
  Sex: Female

DRUGS (5)
  1. DOCETAXEL [Suspect]
     Indication: BREAST CANCER
     Route: 042
  2. CYCLOPHOSPHAMIDE [Concomitant]
     Indication: BREAST CANCER
  3. DEXAMETHASONE [Concomitant]
     Dosage: ON DAY 2 EVERY CYCLE
     Route: 042
  4. EPIRUBICIN [Concomitant]
     Indication: BREAST CANCER
  5. DEXAMETHASONE [Concomitant]
     Indication: ALLERGY PROPHYLAXIS
     Dosage: DAY 1 TO DAY 3 EVERY CYCLE
     Route: 048

REACTIONS (4)
  - RENAL DISORDER [None]
  - WHITE BLOOD CELL COUNT DECREASED [None]
  - OEDEMA PERIPHERAL [None]
  - PLEURAL EFFUSION [None]
